FAERS Safety Report 23683540 (Version 1)
Quarter: 2024Q1

REPORT INFORMATION
  Report Type: Spontaneous
  Country: US (occurrence: US)
  Receive Date: 20240328
  Receipt Date: 20240328
  Transmission Date: 20240410
  Serious: No
  Sender: FDA-Public Use
  Company Number: US-SA-SAC20240321000195

PATIENT
  Age: 67 Year
  Sex: Female

DRUGS (18)
  1. DUPIXENT [Suspect]
     Active Substance: DUPILUMAB
     Indication: Asthma
     Dosage: FREQUENCY- NEVER FILLED
     Route: 058
  2. PREDNISONE [Concomitant]
     Active Substance: PREDNISONE
  3. ALBUTEROL SULFATE [Concomitant]
     Active Substance: ALBUTEROL SULFATE
  4. ARFORMOTEROL [Concomitant]
     Active Substance: ARFORMOTEROL
  5. ASPIRIN [Concomitant]
     Active Substance: ASPIRIN
  6. ATENOLOL [Concomitant]
     Active Substance: ATENOLOL
  7. ATORVASTATIN [Concomitant]
     Active Substance: ATORVASTATIN
  8. BUDESONIDE [Concomitant]
     Active Substance: BUDESONIDE
  9. CLOPIDOGREL [Concomitant]
     Active Substance: CLOPIDOGREL BISULFATE
  10. FLUOXETINE HYDROCHLORIDE [Concomitant]
     Active Substance: FLUOXETINE HYDROCHLORIDE
  11. FLUTICASONE [Concomitant]
     Active Substance: FLUTICASONE
  12. FOLIC ACID [Concomitant]
     Active Substance: FOLIC ACID
  13. MONTELUKAST [Concomitant]
     Active Substance: MONTELUKAST SODIUM
  14. NORVASC [Concomitant]
     Active Substance: AMLODIPINE BESYLATE
  15. PROZAC [Concomitant]
     Active Substance: FLUOXETINE HYDROCHLORIDE
  16. SPIRIVA RESPIMAT [Concomitant]
     Active Substance: TIOTROPIUM BROMIDE
  17. FERROUS SULFATE [Concomitant]
     Active Substance: FERROUS SULFATE
  18. VITAMIN B12 [Concomitant]
     Active Substance: CYANOCOBALAMIN

REACTIONS (3)
  - Cold urticaria [Unknown]
  - Wheezing [Recovered/Resolved]
  - Nasal congestion [Unknown]

NARRATIVE: CASE EVENT DATE: 20240101
